FAERS Safety Report 5055362-1 (Version None)
Quarter: 2006Q3

REPORT INFORMATION
  Report Type: 
  Country: None (occurrence: None)
  Receive Date: 20060719
  Receipt Date: 20060707
  Transmission Date: 20061208
  Serious: Yes (Death, Life-Threatening, Other)
  Sender: FDA-Public Use
  Company Number: JP-ABBOTT-06P-087-0338116-00

PATIENT
  Age: 48 Year
  Sex: Female
  Weight: 38.8 kg

DRUGS (7)
  1. CLARITHROMYCIN [Suspect]
     Indication: BRONCHITIS ACUTE
     Route: 048
     Dates: start: 20050717, end: 20050718
  2. CLARITHROMYCIN [Suspect]
     Route: 048
     Dates: start: 20050723, end: 20050724
  3. CEFCAPENE PIVOXIL HYDROCHLORIDE [Concomitant]
     Indication: BRONCHITIS ACUTE
     Route: 048
     Dates: start: 20050712, end: 20050716
  4. VALPROATE SODIUM [Concomitant]
     Indication: EPILEPSY
     Route: 048
  5. PHENYTOIN [Concomitant]
     Indication: EPILEPSY
     Route: 048
  6. CARBAMAZEPINE [Concomitant]
     Indication: EPILEPSY
     Route: 048
  7. INSULIN [Concomitant]
     Indication: DIABETES MELLITUS NON-INSULIN-DEPENDENT
     Route: 050

REACTIONS (9)
  - AGRANULOCYTOSIS [None]
  - DISSEMINATED INTRAVASCULAR COAGULATION [None]
  - HISTIOCYTOSIS HAEMATOPHAGIC [None]
  - IMMUNE SYSTEM DISORDER [None]
  - LOBAR PNEUMONIA [None]
  - MENINGITIS [None]
  - SEPTIC SHOCK [None]
  - SYSTEMIC INFLAMMATORY RESPONSE SYNDROME [None]
  - WHITE BLOOD CELL COUNT DECREASED [None]
